FAERS Safety Report 7372767-4 (Version None)
Quarter: 2011Q1

REPORT INFORMATION
  Report Type: 
  Country: None (occurrence: None)
  Receive Date: 20110315
  Receipt Date: 20110201
  Transmission Date: 20110831
  Serious: Yes (Hospitalization)
  Sender: FDA-Public Use
  Company Number: 015714

PATIENT
  Sex: Male

DRUGS (9)
  1. CANDESARTAN CILEXETIL [Concomitant]
  2. METHOTREXATE [Concomitant]
  3. RISEDRONATE SODIUM [Concomitant]
  4. CERTOLIZUMAB PEGOL (CERTOLIZUMAB PEGOL) [Suspect]
     Indication: RHEUMATOID ARTHRITIS
     Dosage: 400 MG 1X2 WEEKS,C87041,200MG1X2WEEKS,SUBCUTANEOUS
     Route: 058
     Dates: start: 20091112, end: 20100218
  5. CERTOLIZUMAB PEGOL (CERTOLIZUMAB PEGOL) [Suspect]
     Indication: RHEUMATOID ARTHRITIS
     Dosage: 400 MG 1X2 WEEKS,C87041,200MG1X2WEEKS,SUBCUTANEOUS
     Route: 058
     Dates: start: 20100304
  6. CERTOLIZUMAB PEGOL (CERTOLIZUMAB PEGOL) [Suspect]
     Indication: RHEUMATOID ARTHRITIS
     Dosage: 400 MG 1X2 WEEKS,C87041,200MG1X2WEEKS,SUBCUTANEOUS
     Route: 058
     Dates: start: 20100722
  7. LANSOPRAZOLE [Concomitant]
  8. MELOXICAM [Concomitant]
  9. AMLODIPINE BESILATE [Concomitant]

REACTIONS (3)
  - FOOT DEFORMITY [None]
  - DECREASED IMMUNE RESPONSIVENESS [None]
  - BRONCHITIS [None]
